FAERS Safety Report 16003493 (Version 2)
Quarter: 2019Q1

REPORT INFORMATION
  Report Type: Spontaneous
  Country: US (occurrence: US)
  Receive Date: 20190226
  Receipt Date: 20190306
  Transmission Date: 20190418
  Serious: No
  Sender: FDA-Public Use
  Company Number: US-AMGEN-USASP2019027797

PATIENT
  Age: 69 Year
  Sex: Male
  Weight: 72.56 kg

DRUGS (1)
  1. REPATHA [Suspect]
     Active Substance: EVOLOCUMAB
     Indication: PRODUCT USED FOR UNKNOWN INDICATION
     Dosage: 140 UNK, Q2WK
     Route: 065
     Dates: start: 20180710, end: 20190110

REACTIONS (4)
  - Injection site swelling [Unknown]
  - Injection site erythema [Not Recovered/Not Resolved]
  - Injection site pruritus [Unknown]
  - Nasopharyngitis [Not Recovered/Not Resolved]

NARRATIVE: CASE EVENT DATE: 20190110
